FAERS Safety Report 17949702 (Version 1)
Quarter: 2020Q2

REPORT INFORMATION
  Report Type: Spontaneous
  Country: US (occurrence: US)
  Receive Date: 20200626
  Receipt Date: 20200626
  Transmission Date: 20200714
  Serious: Yes (Disabling)
  Sender: FDA-Public Use
  Company Number: None

PATIENT
  Age: 44 Year
  Sex: Female
  Weight: 73.8 kg

DRUGS (2)
  1. XGEVA [Concomitant]
     Active Substance: DENOSUMAB
     Dates: start: 20200505, end: 20200505
  2. ENHERTU [Suspect]
     Active Substance: FAM-TRASTUZUMAB DERUXTECAN-NXKI
     Indication: BREAST CANCER
     Dosage: ?          OTHER FREQUENCY:1 DAY;?
     Route: 041
     Dates: start: 20200505, end: 20200505

REACTIONS (3)
  - Abdominal pain upper [None]
  - Burning sensation [None]
  - Myalgia [None]

NARRATIVE: CASE EVENT DATE: 20200505
